FAERS Safety Report 5358946-6 (Version None)
Quarter: 2007Q2

REPORT INFORMATION
  Report Type: 
  Country: None (occurrence: None)
  Receive Date: 20070615
  Receipt Date: 20070608
  Transmission Date: 20071010
  Serious: Yes (Hospitalization, Disabling)
  Sender: FDA-Public Use
  Company Number: D0053298A

PATIENT
  Age: 79 Year
  Sex: Female
  Weight: 66 kg

DRUGS (3)
  1. AVANDIA [Suspect]
     Dosage: 4MG PER DAY
     Route: 048
     Dates: start: 20040201
  2. CORDANUM [Concomitant]
     Indication: HYPERTENSION
     Dosage: 50MG PER DAY
     Route: 048
  3. CAPTO [Concomitant]
     Indication: HYPERTENSION
     Dosage: 25MG TWICE PER DAY
     Route: 048

REACTIONS (3)
  - FALL [None]
  - HUMERUS FRACTURE [None]
  - RADIAL NERVE PALSY [None]
